FAERS Safety Report 11246334 (Version 1)
Quarter: 2015Q3

REPORT INFORMATION
  Report Type: Spontaneous
  Country: US (occurrence: None)
  Receive Date: 20150706
  Receipt Date: 20150706
  Transmission Date: 20151125
  Serious: Yes (Disabling)
  Sender: FDA-Public Use
  Company Number: None

PATIENT
  Age: 41 Year
  Sex: Male
  Weight: 79.38 kg

DRUGS (2)
  1. BRINTELLIX [Suspect]
     Active Substance: VORTIOXETINE HYDROBROMIDE
     Indication: MAJOR DEPRESSION
     Route: 048
     Dates: start: 20150501, end: 20150701
  2. ALPRAZOLAM XR [Concomitant]
     Active Substance: ALPRAZOLAM

REACTIONS (2)
  - Vomiting [None]
  - Impaired work ability [None]

NARRATIVE: CASE EVENT DATE: 20150501
